FAERS Safety Report 8491668-1 (Version None)
Quarter: 2012Q3

REPORT INFORMATION
  Report Type: 
  Country: None (occurrence: None)
  Receive Date: 20120706
  Receipt Date: 20120628
  Transmission Date: 20120928
  Serious: Yes (Hospitalization)
  Sender: FDA-Public Use
  Company Number: LV-BRISTOL-MYERS SQUIBB COMPANY-16721730

PATIENT
  Age: 45 Year
  Sex: Female
  Weight: 100 kg

DRUGS (4)
  1. BICNU [Suspect]
     Dosage: FORMULATION-100MG
     Route: 042
     Dates: start: 20120626
  2. DOXORUBICIN HCL [Concomitant]
  3. ETOPOSIDE [Concomitant]
  4. IFOSFAMIDE [Concomitant]

REACTIONS (5)
  - NAUSEA [None]
  - ERYTHEMA [None]
  - ASTHENIA [None]
  - DIZZINESS [None]
  - DYSPNOEA [None]
